FAERS Safety Report 7919292-7 (Version None)
Quarter: 2011Q4

REPORT INFORMATION
  Report Type: 
  Country: None (occurrence: None)
  Receive Date: 20111115
  Receipt Date: 20111115
  Transmission Date: 20120403
  Serious: Yes (Other)
  Sender: FDA-Public Use
  Company Number: None

PATIENT
  Sex: Female
  Weight: 63.5036 kg

DRUGS (1)
  1. CRESTOR [Suspect]
     Dosage: TAKE ONE DAILY
     Dates: end: 20110906

REACTIONS (8)
  - HEPATIC ENZYME INCREASED [None]
  - URINE COLOUR ABNORMAL [None]
  - MALAISE [None]
  - ARTHRALGIA [None]
  - YELLOW SKIN [None]
  - OCULAR ICTERUS [None]
  - FATIGUE [None]
  - NAUSEA [None]
